FAERS Safety Report 9248138 (Version 1)
Quarter: 2013Q1

REPORT INFORMATION
  Report Type: Spontaneous
  Country: US (occurrence: None)
  Receive Date: 20130305
  Receipt Date: 20130305
  Transmission Date: 20140127
  Serious: Yes (Hospitalization)
  Sender: FDA-Public Use
  Company Number: 163-21880-12092247

PATIENT
  Age: 78 Year
  Sex: Male

DRUGS (4)
  1. REVLIMID [Suspect]
     Indication: PLASMA CELL MYELOMA
     Route: 048
     Dates: start: 20120516
  2. VALACYCLOVIR HCL(VALACICLOVIR HYDROCHLORIDE) (UNKNOWN) [Concomitant]
  3. VALCYTE(VALGANCICLOVIR HYDROCHLORIDE) (UNKNOWN) [Concomitant]
  4. TAMSULOSIN HCL(TAMSULOSIN HYDROCHLORIDE) (UNKNOWN) [Concomitant]

REACTIONS (1)
  - Pneumonia [None]
